FAERS Safety Report 12631316 (Version 2)
Quarter: 2016Q3

REPORT INFORMATION
  Report Type: Spontaneous
  Country: US (occurrence: US)
  Receive Date: 20160808
  Receipt Date: 20160808
  Transmission Date: 20161109
  Serious: No
  Sender: FDA-Public Use
  Company Number: US-BEH-2015053262

PATIENT
  Sex: Female
  Weight: 56 kg

DRUGS (19)
  1. RITALIN [Concomitant]
     Active Substance: METHYLPHENIDATE HYDROCHLORIDE
  2. BENADRYL [Concomitant]
     Active Substance: DIPHENHYDRAMINE HYDROCHLORIDE
  3. HIZENTRA [Suspect]
     Active Substance: HUMAN IMMUNOGLOBULIN G
     Indication: IMMUNODEFICIENCY COMMON VARIABLE
     Dosage: 4 GM 20 ML VIAL
     Route: 058
  4. DIPHENHYDRAMINE. [Concomitant]
     Active Substance: DIPHENHYDRAMINE
  5. ALBUTEROL SULFATE. [Concomitant]
     Active Substance: ALBUTEROL SULFATE
  6. REPLENISHING EYE DROPS [Concomitant]
  7. TUMS [Concomitant]
     Active Substance: CALCIUM CARBONATE
  8. GAS-X [Concomitant]
     Active Substance: DIMETHICONE
  9. SINGULAIR [Concomitant]
     Active Substance: MONTELUKAST SODIUM
  10. VITAMIN C [Concomitant]
     Active Substance: ASCORBIC ACID
  11. LIDOCAINE/PRILOCAINE [Concomitant]
     Active Substance: LIDOCAINE\PRILOCAINE
     Indication: PREMEDICATION
  12. ACETAMINOPHEN. [Concomitant]
     Active Substance: ACETAMINOPHEN
  13. MUPIROCIN. [Concomitant]
     Active Substance: MUPIROCIN
  14. CHLORTRIMETON [Concomitant]
     Active Substance: CHLORPHENIRAMINE MALEATE
  15. EPIPEN [Concomitant]
     Active Substance: EPINEPHRINE
     Indication: ANAPHYLACTIC REACTION
  16. BACTROBAN [Concomitant]
     Active Substance: MUPIROCIN\MUPIROCIN CALCIUM
  17. CELEXA [Concomitant]
     Active Substance: CITALOPRAM HYDROBROMIDE
  18. FLOVENT [Concomitant]
     Active Substance: FLUTICASONE PROPIONATE
  19. MULTIVITAMINS [Concomitant]
     Active Substance: VITAMINS

REACTIONS (5)
  - Headache [Recovered/Resolved]
  - Chills [Recovered/Resolved]
  - Injection site mass [Recovered/Resolved]
  - Depressed mood [Recovered/Resolved]
  - Fatigue [Recovered/Resolved]
